FAERS Safety Report 10008010 (Version 5)
Quarter: 2014Q2

REPORT INFORMATION
  Report Type: Spontaneous
  Country: US (occurrence: US)
  Receive Date: 20140313
  Receipt Date: 20140507
  Transmission Date: 20141212
  Serious: Yes (Life-Threatening, Hospitalization)
  Sender: FDA-Public Use
  Company Number: US-JNJFOC-20140306535

PATIENT
  Age: 68 Year
  Sex: Female
  Weight: 54.2 kg

DRUGS (7)
  1. RIVAROXABAN [Suspect]
     Indication: CEREBROVASCULAR ACCIDENT PROPHYLAXIS
     Route: 048
  2. RIVAROXABAN [Suspect]
     Indication: ATRIAL FIBRILLATION
     Route: 048
  3. AMIODARONE [Concomitant]
     Dosage: DAILY
     Route: 065
  4. COREG [Concomitant]
     Route: 065
  5. PROTONIX [Concomitant]
     Dosage: DAILY
     Route: 065
  6. BIDIL [Concomitant]
     Dosage: 20/37.5 MG DAILY
     Route: 065
  7. ALPRAZOLAM [Concomitant]
     Dosage: PRN
     Route: 065

REACTIONS (2)
  - Basal ganglia haemorrhage [Recovering/Resolving]
  - Blood pressure systolic increased [Recovering/Resolving]
